FAERS Safety Report 12716586 (Version 1)
Quarter: 2016Q3

REPORT INFORMATION
  Report Type: Spontaneous
  Country: US (occurrence: US)
  Receive Date: 20160906
  Receipt Date: 20160906
  Transmission Date: 20161109
  Serious: Yes (Hospitalization, Disabling)
  Sender: FDA-Public Use
  Company Number: None

PATIENT
  Age: 37 Year
  Sex: Male
  Weight: 94.5 kg

DRUGS (2)
  1. CIPROFLOXACIN HCL 500 [Suspect]
     Active Substance: CIPROFLOXACIN HYDROCHLORIDE
     Indication: BETA HAEMOLYTIC STREPTOCOCCAL INFECTION
     Route: 048
     Dates: start: 20160715, end: 20160729
  2. CIPROFLOXACIN HCL 500 [Suspect]
     Active Substance: CIPROFLOXACIN HYDROCHLORIDE
     Indication: PROSTATITIS
     Route: 048
     Dates: start: 20160715, end: 20160729

REACTIONS (13)
  - Back pain [None]
  - Paraesthesia [None]
  - Musculoskeletal pain [None]
  - Skin burning sensation [None]
  - Bone pain [None]
  - Arthralgia [None]
  - Dysstasia [None]
  - Hyperaesthesia [None]
  - Neck pain [None]
  - Renal pain [None]
  - Muscle disorder [None]
  - Muscle contracture [None]
  - Spinal pain [None]

NARRATIVE: CASE EVENT DATE: 20160801
